FAERS Safety Report 5446131-9 (Version None)
Quarter: 2007Q3

REPORT INFORMATION
  Report Type: 
  Country: None (occurrence: None)
  Receive Date: 20070907
  Receipt Date: 20070823
  Transmission Date: 20080115
  Serious: Yes (Hospitalization)
  Sender: FDA-Public Use
  Company Number: ES-ELI_LILLY_AND_COMPANY-ES200708005641

PATIENT

DRUGS (1)
  1. FORTEO [Suspect]

REACTIONS (1)
  - BRONCHIAL DISORDER [None]
